FAERS Safety Report 18570396 (Version 1)
Quarter: 2020Q4

REPORT INFORMATION
  Report Type: Spontaneous
  Country: NO (occurrence: NO)
  Receive Date: 20201202
  Receipt Date: 20201202
  Transmission Date: 20210114
  Serious: Yes (Death)
  Sender: FDA-Public Use
  Company Number: NVSC2020NO320464

PATIENT
  Age: 70 Year
  Sex: Female

DRUGS (4)
  1. PARACETAMOL [Suspect]
     Active Substance: ACETAMINOPHEN
     Indication: PAIN
     Dosage: 1 G, QID
     Route: 048
     Dates: start: 20200802
  2. PARACETAMOL [Suspect]
     Active Substance: ACETAMINOPHEN
     Dosage: 1 G, 5 TIMES DAILY
     Route: 048
     Dates: start: 20200803
  3. PARACETAMOL [Suspect]
     Active Substance: ACETAMINOPHEN
     Dosage: 1 G, TID
     Route: 048
     Dates: start: 20200805, end: 20200806
  4. PARACETAMOL [Suspect]
     Active Substance: ACETAMINOPHEN
     Dosage: 1 G, TID
     Route: 048
     Dates: start: 20200804

REACTIONS (1)
  - Acute hepatic failure [Fatal]

NARRATIVE: CASE EVENT DATE: 20200806
